FAERS Safety Report 24843842 (Version 1)
Quarter: 2025Q1

REPORT INFORMATION
  Report Type: Spontaneous
  Country: US (occurrence: US)
  Receive Date: 20250115
  Receipt Date: 20250115
  Transmission Date: 20250409
  Serious: Yes (Other)
  Sender: DR REDDYS
  Company Number: US-DRL-USA-USA/2025/01/000512

PATIENT
  Age: 18 Year
  Sex: Female

DRUGS (2)
  1. BUDESONIDE [Suspect]
     Active Substance: BUDESONIDE
     Indication: Gastroenteritis eosinophilic
  2. LOPERAMIDE [Concomitant]
     Active Substance: LOPERAMIDE
     Indication: Gastroenteritis eosinophilic

REACTIONS (1)
  - Drug ineffective for unapproved indication [Unknown]
